FAERS Safety Report 24379644 (Version 1)
Quarter: 2024Q3

REPORT INFORMATION
  Report Type: Spontaneous
  Country: US (occurrence: None)
  Receive Date: 20240930
  Receipt Date: 20240930
  Transmission Date: 20241016
  Serious: No
  Sender: Public
  Company Number: None

PATIENT
  Sex: Female

DRUGS (1)
  1. QSYMIA [Suspect]
     Active Substance: PHENTERMINE HYDROCHLORIDE\TOPIRAMATE
     Indication: Weight decreased
     Dosage: 1 CAPSULE ORAL
     Route: 048
     Dates: start: 20240610

REACTIONS (6)
  - Blister [None]
  - Arthropod bite [None]
  - Skin exfoliation [None]
  - Skin weeping [None]
  - Skin weeping [None]
  - Impaired healing [None]

NARRATIVE: CASE EVENT DATE: 20240929
